FAERS Safety Report 14994195 (Version 1)
Quarter: 2018Q2

REPORT INFORMATION
  Report Type: Spontaneous
  Country: US (occurrence: US)
  Receive Date: 20180611
  Receipt Date: 20180611
  Transmission Date: 20180711
  Serious: Yes (Other)
  Sender: FDA-Public Use
  Company Number: US-ACCORD-068126

PATIENT
  Age: 69 Year
  Sex: Female

DRUGS (3)
  1. OXYBUTYNIN ACCORD [Suspect]
     Active Substance: OXYBUTYNIN
     Indication: PRODUCT USED FOR UNKNOWN INDICATION
     Dosage: 10 MG ONCE A DAY
     Route: 048
     Dates: end: 201805
  2. HYOSCINE [Concomitant]
     Active Substance: SCOPOLAMINE
  3. MIMVEY [Concomitant]
     Active Substance: ESTRADIOL\NORETHINDRONE ACETATE

REACTIONS (3)
  - Product substitution issue [Unknown]
  - Urinary retention [Unknown]
  - Haemorrhage [Unknown]
